FAERS Safety Report 13449432 (Version 5)
Quarter: 2017Q2

REPORT INFORMATION
  Report Type: Report from Study
  Country: CA (occurrence: CA)
  Receive Date: 20170417
  Receipt Date: 20170615
  Transmission Date: 20170830
  Serious: Yes (Death, Other)
  Sender: FDA-Public Use
  Company Number: PHHY2015CA158844

PATIENT
  Age: 82 Year
  Sex: Female

DRUGS (3)
  1. SANDOSTATIN LAR DEPOT [Suspect]
     Active Substance: OCTREOTIDE ACETATE
     Indication: NEUROENDOCRINE TUMOUR
     Dosage: 30 MG, QMO (EVERY 4 WEEKS)
     Route: 030
     Dates: start: 20151102, end: 20170219
  2. COUMADIN [Concomitant]
     Active Substance: WARFARIN SODIUM
     Indication: PRODUCT USED FOR UNKNOWN INDICATION
     Dosage: UNK
     Route: 065
     Dates: start: 20170418
  3. SANDOSTATIN LAR DEPOT [Suspect]
     Active Substance: OCTREOTIDE ACETATE
     Dosage: 30 MG, (EVERY 3 WEEKS)
     Route: 030
     Dates: start: 20170321, end: 20170524

REACTIONS (25)
  - Peripheral swelling [Unknown]
  - Death [Fatal]
  - Dizziness [Unknown]
  - Blood pressure increased [Unknown]
  - Dysstasia [Unknown]
  - Oedema peripheral [Unknown]
  - Malaise [Unknown]
  - Fall [Unknown]
  - Body temperature decreased [Unknown]
  - Blood pressure systolic increased [Unknown]
  - Feeling abnormal [Unknown]
  - Injection site pain [Unknown]
  - Chest pain [Unknown]
  - Upper limb fracture [Unknown]
  - Arthralgia [Unknown]
  - Pruritus [Unknown]
  - Inappropriate schedule of drug administration [Unknown]
  - Joint swelling [Unknown]
  - Asthenia [Unknown]
  - Myocardial haemorrhage [Unknown]
  - Pain [Unknown]
  - Mobility decreased [Unknown]
  - Diarrhoea [Recovering/Resolving]
  - Pain in extremity [Unknown]
  - Musculoskeletal pain [Unknown]

NARRATIVE: CASE EVENT DATE: 20151130
